FAERS Safety Report 10339677 (Version 1)
Quarter: 2014Q3

REPORT INFORMATION
  Report Type: Spontaneous
  Country: BR (occurrence: None)
  Receive Date: 20140722
  Receipt Date: 20140722
  Transmission Date: 20150326
  Serious: Yes (Hospitalization)
  Sender: FDA-Public Use
  Company Number: IPC201407-000361

PATIENT
  Age: 63 Year
  Sex: Female

DRUGS (4)
  1. SIMVASTATIN. [Suspect]
     Active Substance: SIMVASTATIN
  2. CLOPIDOGREL [Suspect]
     Active Substance: CLOPIDOGREL BISULFATE
  3. METOPROLOL TARTRATE. [Suspect]
     Active Substance: METOPROLOL TARTRATE
  4. ASPIRIN. [Suspect]
     Active Substance: ASPIRIN

REACTIONS (13)
  - Decreased appetite [None]
  - Febrile neutropenia [None]
  - Toxicity to various agents [None]
  - Diarrhoea [None]
  - Cough [None]
  - Thrombocytopenia [None]
  - Staphylococcus test positive [None]
  - Bone marrow toxicity [None]
  - Atypical pneumonia [None]
  - Blood culture positive [None]
  - Asthenia [None]
  - Leukopenia [None]
  - Anaemia [None]
